FAERS Safety Report 23648176 (Version 2)
Quarter: 2024Q1

REPORT INFORMATION
  Report Type: Spontaneous
  Country: CN (occurrence: CN)
  Receive Date: 20240319
  Receipt Date: 20240325
  Transmission Date: 20240410
  Serious: Yes (Hospitalization, Other)
  Sender: FDA-Public Use
  Company Number: CN-MLMSERVICE-20240311-4873922-1

PATIENT
  Age: 75 Year
  Sex: Female

DRUGS (11)
  1. PACLITAXEL [Suspect]
     Active Substance: PACLITAXEL
     Indication: Cervix carcinoma
     Dosage: UNK
     Route: 042
     Dates: start: 20150424, end: 20150424
  2. PACLITAXEL [Suspect]
     Active Substance: PACLITAXEL
     Dosage: UNK
     Route: 042
     Dates: start: 20150518, end: 20150518
  3. PACLITAXEL [Suspect]
     Active Substance: PACLITAXEL
     Dosage: UNK (LAST CHEMOTHERAPY)
     Route: 042
     Dates: start: 20150917, end: 20150917
  4. CISPLATIN [Suspect]
     Active Substance: CISPLATIN
     Indication: Cervix carcinoma
     Dosage: UNK
     Route: 042
     Dates: start: 20150424, end: 20150424
  5. CISPLATIN [Suspect]
     Active Substance: CISPLATIN
     Dosage: UNK
     Route: 042
     Dates: start: 20150518, end: 20150518
  6. CISPLATIN [Suspect]
     Active Substance: CISPLATIN
     Dosage: UNK (LAST CHEMOTHERAPY)
     Route: 042
     Dates: start: 20150917, end: 20150917
  7. MANNITOL [Concomitant]
     Active Substance: MANNITOL
     Indication: Angle closure glaucoma
     Dosage: UNK
     Dates: start: 201505
  8. BRINZOLAMIDE [Concomitant]
     Active Substance: BRINZOLAMIDE
     Indication: Angle closure glaucoma
     Dosage: UNK
     Route: 047
     Dates: start: 201505
  9. DEXAMETHASONE\TOBRAMYCIN [Concomitant]
     Active Substance: DEXAMETHASONE\TOBRAMYCIN
     Indication: Angle closure glaucoma
     Dosage: UNK
     Route: 047
     Dates: start: 201505
  10. CARTEOLOL HYDROCHLORIDE [Concomitant]
     Active Substance: CARTEOLOL HYDROCHLORIDE
     Indication: Angle closure glaucoma
     Dosage: UNK
     Route: 047
     Dates: start: 201505
  11. AMLODIPINE BESYLATE [Concomitant]
     Active Substance: AMLODIPINE BESYLATE
     Indication: Hypertension
     Dosage: UNK

REACTIONS (1)
  - Retinopathy [Recovering/Resolving]

NARRATIVE: CASE EVENT DATE: 20150527
